FAERS Safety Report 7689892 (Version 3)
Quarter: 2012Q4

REPORT INFORMATION
  Report Type: Report from Study
  Country: SE (occurrence: SE)
  Receive Date: 20101202
  Receipt Date: 20120912
  Transmission Date: 20130627
  Serious: Yes (Hospitalization)
  Sender: FDA-Public Use
  Company Number: PHHO2010SE17808

PATIENT
  Age: 73 Year
  Sex: Male
  Weight: 70 kg

DRUGS (1)
  1. AMN107 [Suspect]
     Indication: CHRONIC MYELOID LEUKAEMIA
     Dosage: 300 mg, BID
     Route: 048
     Dates: start: 20071213

REACTIONS (2)
  - Myocardial infarction [Recovered/Resolved]
  - Chest pain [Recovered/Resolved]
